FAERS Safety Report 20963015 (Version 2)
Quarter: 2023Q1

REPORT INFORMATION
  Report Type: Spontaneous
  Country: US (occurrence: None)
  Receive Date: 20220615
  Receipt Date: 20230123
  Transmission Date: 20230417
  Serious: Yes (Other)
  Sender: FDA-Public Use
  Company Number: US-MDD US Operations-MDD202204-000817

PATIENT
  Age: 77 Year
  Sex: Female
  Weight: 45.35 kg

DRUGS (10)
  1. APOKYN [Suspect]
     Active Substance: APOMORPHINE HYDROCHLORIDE
     Indication: Parkinson^s disease
     Dates: start: 202002
  2. APOKYN [Suspect]
     Active Substance: APOMORPHINE HYDROCHLORIDE
  3. APOKYN [Suspect]
     Active Substance: APOMORPHINE HYDROCHLORIDE
     Route: 058
  4. APOKYN [Suspect]
     Active Substance: APOMORPHINE HYDROCHLORIDE
     Route: 058
     Dates: start: 20220704
  5. APOKYN [Suspect]
     Active Substance: APOMORPHINE HYDROCHLORIDE
  6. RYTARY [Suspect]
     Active Substance: CARBIDOPA\LEVODOPA
     Indication: Parkinson^s disease
  7. GABAPENTIN [Concomitant]
     Active Substance: GABAPENTIN
     Indication: Parkinson^s disease
  8. SINEMET [Concomitant]
     Active Substance: CARBIDOPA\LEVODOPA
     Indication: Parkinson^s disease
     Dosage: EACH DF OF 25/100 MG
  9. ROPINIROLE [Concomitant]
     Active Substance: ROPINIROLE
     Indication: Parkinson^s disease
  10. ROPINIROLE [Concomitant]
     Active Substance: ROPINIROLE

REACTIONS (7)
  - Deep brain stimulation [Unknown]
  - Post-traumatic neck syndrome [Unknown]
  - Fall [Unknown]
  - Muscle strain [Unknown]
  - Limb injury [Unknown]
  - Blood pressure decreased [Unknown]
  - Therapeutic product effect decreased [Unknown]

NARRATIVE: CASE EVENT DATE: 20220201
